FAERS Safety Report 9882649 (Version 3)
Quarter: 2014Q3

REPORT INFORMATION
  Report Type: Report from Study
  Country: CO (occurrence: CO)
  Receive Date: 20140207
  Receipt Date: 20140801
  Transmission Date: 20150326
  Serious: Yes (Life-Threatening, Hospitalization)
  Sender: FDA-Public Use
  Company Number: PHHO2012CO009676

PATIENT
  Age: 67 Year
  Sex: Male
  Weight: 63.4 kg

DRUGS (41)
  1. FUROSEMIDE. [Concomitant]
     Active Substance: FUROSEMIDE
     Dosage: UNK
  2. MAGNESIO [Concomitant]
     Route: 042
  3. VASOPRESINA [Concomitant]
     Route: 042
  4. LCZ696 [Suspect]
     Active Substance: INVESTIGATIONAL PRODUCT
     Dosage: 200 MG, BID
     Route: 048
     Dates: start: 20120627
  5. METILDIGOXIN [Concomitant]
     Active Substance: METILDIGOXIN
     Indication: CARDIAC FAILURE
     Dosage: 0.1 MG, QD
     Route: 048
  6. LOVASTATIN. [Concomitant]
     Active Substance: LOVASTATIN
     Indication: CARDIOVASCULAR EVENT PROPHYLAXIS
     Dosage: 20 MG, QD
     Route: 048
     Dates: end: 20120510
  7. ACETAMINOPHEN. [Concomitant]
     Active Substance: ACETAMINOPHEN
     Dosage: 1 G, C/6 HRS
     Route: 048
  8. ATORVASTATINA [Concomitant]
     Active Substance: ATORVASTATIN
     Dosage: 40 MG, NOCHE
     Route: 048
  9. DIPIRONA [Concomitant]
     Active Substance: METAMIZOLE
     Dosage: 6 ML, INFUSION DURANTE 16  HRS
     Route: 042
  10. DOBUTAMINA [Concomitant]
     Dosage: 250 MG, UNK
     Route: 042
  11. METOPROLOL [Concomitant]
     Active Substance: METOPROLOL
     Dosage: 100 MG, C/12 HRS
     Route: 048
  12. ENALAPRIL [Concomitant]
     Active Substance: ENALAPRIL
     Indication: CARDIAC FAILURE
     Dosage: 5 MG, BID
     Route: 048
     Dates: start: 2008, end: 20101213
  13. FUROSEMIDE. [Concomitant]
     Active Substance: FUROSEMIDE
     Dosage: 20 MG, C/6 HRS
     Route: 042
  14. ACIDO TRANEXAMICO [Concomitant]
     Dosage: 500 MG, C/8HRS
     Route: 042
  15. DULCOLAX [Concomitant]
     Active Substance: BISACODYL OR DOCUSATE SODIUM
     Dosage: 5 MG, DIA
     Route: 048
  16. HEPARINA//HEPARIN SODIUM [Concomitant]
     Dosage: 60 MG, C/12 HRS
     Route: 058
  17. HEPARINA//HEPARIN SODIUM [Concomitant]
     Dosage: 40 MG, C/12 HRS
     Route: 058
  18. NORADRENALINA//NOREPINEPHRINE [Concomitant]
     Dosage: 8 MG, UNK
     Route: 042
  19. LCZ696 [Suspect]
     Active Substance: INVESTIGATIONAL PRODUCT
     Indication: CARDIAC FAILURE CHRONIC
     Dosage: 200 MG, BID
     Route: 048
     Dates: start: 20101214, end: 20120510
  20. ACIDO ACETIL SALICILICO [Concomitant]
     Active Substance: ASPIRIN
     Dosage: 100 MG, DIA
     Route: 048
  21. ESPIRONOLACTONA [Concomitant]
     Active Substance: SPIRONOLACTONE
     Dosage: 25 MG, DIA
     Route: 048
  22. OMEPRAZOLE. [Concomitant]
     Active Substance: OMEPRAZOLE
     Dosage: 20 MG, DIA
     Route: 048
  23. ENOXAPARIN [Suspect]
     Active Substance: ENOXAPARIN
  24. METOPROLOL [Concomitant]
     Active Substance: METOPROLOL
     Dosage: 50 MG, C/12 HRS
     Route: 048
  25. FENTANILO//FENTANYL [Concomitant]
     Active Substance: FENTANYL
     Dosage: 100 MG, PRN
     Route: 042
  26. GLUCONATO DE POTASIO [Concomitant]
     Dosage: 10 ML, C/8 HRS
     Route: 048
  27. MORFINA//MORPHINE [Concomitant]
     Dosage: 3 MG, PRN C4 HRS
     Route: 042
  28. ACETYLSALICYLIC ACID [Suspect]
     Active Substance: ASPIRIN
     Dosage: 100 MG, QD
     Route: 048
     Dates: end: 20120510
  29. CEFAZOLINA [Concomitant]
     Active Substance: CEFAZOLIN SODIUM
     Dosage: 1 G, C/12 HRS
     Route: 042
  30. DIPIRONA [Concomitant]
     Active Substance: METAMIZOLE
     Dosage: 2.5 G, C/HRS
  31. HEPARINA//HEPARIN SODIUM [Concomitant]
     Dosage: 60 MG, C/24 HRS
     Route: 058
  32. LOSARTAN [Concomitant]
     Active Substance: LOSARTAN
     Dosage: 50 MG, C/12 HRS
     Route: 048
  33. N-ACETILCISTEINA [Concomitant]
     Route: 048
  34. METOPROLOL [Concomitant]
     Active Substance: METOPROLOL
     Indication: CARDIAC FAILURE
     Dosage: 50 MG, QD
     Route: 048
     Dates: start: 2008, end: 20120510
  35. FUROSEMIDE. [Concomitant]
     Active Substance: FUROSEMIDE
     Indication: CARDIAC FAILURE
     Dosage: 40 MG, QD
     Route: 048
     Dates: end: 20120510
  36. ADRENALINA APOLO [Concomitant]
     Dosage: 10 MG, DIA
     Route: 042
  37. AMLODIPINO//AMLODIPINE [Concomitant]
     Dosage: 10 MG, DIA
     Route: 048
  38. CARVEDILOL. [Concomitant]
     Active Substance: CARVEDILOL
     Dosage: 12.5 MG, C/12 HRS
     Route: 048
  39. HEPARINA//HEPARIN SODIUM [Concomitant]
     Dosage: 40 MG, C/24 HRS
     Route: 058
  40. INSULIN CRYSTALINE [Concomitant]
     Dosage: 1 DF, 100U/10 ML ESQUEMA MOVIL
     Route: 058
  41. MIDAZOLAM [Concomitant]
     Active Substance: MIDAZOLAM\MIDAZOLAM HYDROCHLORIDE
     Dosage: 5 MG, PRN
     Route: 042

REACTIONS (7)
  - Coagulopathy [Recovered/Resolved]
  - Aortic dilatation [Recovered/Resolved]
  - Thrombocytopenia [Recovered/Resolved]
  - Aortic valve incompetence [Recovered/Resolved]
  - Haematuria [Recovered/Resolved]
  - Acute coronary syndrome [Recovered/Resolved]
  - Renal injury [Recovered/Resolved]

NARRATIVE: CASE EVENT DATE: 20120510
